FAERS Safety Report 9464325 (Version 1)
Quarter: 2013Q3

REPORT INFORMATION
  Report Type: Report from Study
  Country: MX (occurrence: MX)
  Receive Date: 20130819
  Receipt Date: 20130819
  Transmission Date: 20140515
  Serious: Yes (Other)
  Sender: FDA-Public Use
  Company Number: PHHY2013MX088971

PATIENT
  Age: 44 Year
  Sex: Female

DRUGS (2)
  1. TEGRETOL [Suspect]
     Indication: EPILEPSY
     Dosage: 3 DF, DAILY
     Route: 048
     Dates: start: 1993, end: 201211
  2. TEGRETOL [Suspect]
     Dosage: 2.5 DF, DAILY
     Route: 048
     Dates: start: 201211

REACTIONS (4)
  - Breast cancer [Not Recovered/Not Resolved]
  - Immune system disorder [Not Recovered/Not Resolved]
  - Aura [Unknown]
  - Wrong technique in drug usage process [Not Recovered/Not Resolved]
